FAERS Safety Report 12312402 (Version 1)
Quarter: 2016Q2

REPORT INFORMATION
  Report Type: Spontaneous
  Country: SE (occurrence: SE)
  Receive Date: 20160428
  Receipt Date: 20160428
  Transmission Date: 20160815
  Serious: Yes (Life-Threatening)
  Sender: FDA-Public Use
  Company Number: SE-ROCHE-1748777

PATIENT
  Age: 58 Year
  Sex: Male

DRUGS (1)
  1. MABTHERA [Suspect]
     Active Substance: RITUXIMAB
     Indication: IMMUNE THROMBOCYTOPENIC PURPURA
     Route: 042
     Dates: start: 20080703, end: 20080724

REACTIONS (2)
  - Alveolitis allergic [Not Recovered/Not Resolved]
  - Pulmonary hypertension [Not Recovered/Not Resolved]
